FAERS Safety Report 24187953 (Version 1)
Quarter: 2024Q3

REPORT INFORMATION
  Report Type: Spontaneous
  Country: US (occurrence: US)
  Receive Date: 20240808
  Receipt Date: 20240808
  Transmission Date: 20241016
  Serious: No
  Sender: AUROBINDO
  Company Number: US-AUROBINDO-AUR-APL-2023-054970

PATIENT
  Age: 95 Year
  Sex: Female
  Weight: 46.7 kg

DRUGS (2)
  1. LEVOFLOXACIN [Suspect]
     Active Substance: LEVOFLOXACIN
     Indication: Infection
     Dosage: 1 DOSAGE FORM, DAILY
     Route: 048
     Dates: start: 20230810, end: 20230815
  2. CARVEDILOL [Concomitant]
     Active Substance: CARVEDILOL
     Indication: Blood pressure measurement
     Dosage: UNK
     Route: 065

REACTIONS (5)
  - Somnolence [Unknown]
  - Diarrhoea [Unknown]
  - Therapy cessation [Unknown]
  - Wrong technique in product usage process [Unknown]
  - Product use complaint [Unknown]
